FAERS Safety Report 15081378 (Version 1)
Quarter: 2018Q2

REPORT INFORMATION
  Report Type: Spontaneous
  Country: US (occurrence: US)
  Receive Date: 20180628
  Receipt Date: 20180628
  Transmission Date: 20180711
  Serious: Yes (Other)
  Sender: FDA-Public Use
  Company Number: US-FRESENIUS KABI-FK201807318

PATIENT
  Age: 39 Year
  Sex: Male

DRUGS (6)
  1. HYDROMORPHONE HCL [Suspect]
     Active Substance: HYDROMORPHONE HYDROCHLORIDE
     Dosage: 6 OPTIONAL DAILY BOLUS DOSES OF 0,100 MG
     Route: 037
     Dates: start: 200607, end: 201702
  2. BACLOFEN. [Suspect]
     Active Substance: BACLOFEN
     Dosage: 6 OPTIONAL DAILY BOLUS DOSES OF 1,8 MCG BACLOFEN
     Route: 037
  3. BUPIVACAINE (MANUFACTURER UNKNOWN) [Suspect]
     Active Substance: BUPIVACAINE
     Indication: BACK PAIN
     Dosage: 3,3431 MG/DAY
     Route: 037
     Dates: start: 200607, end: 201702
  4. BUPIVACAINE (MANUFACTURER UNKNOWN) [Suspect]
     Active Substance: BUPIVACAINE
     Dosage: 6 OPTIONAL DAILY BOLUS DOSES OF 0,013 MG
     Route: 037
     Dates: start: 200607, end: 201702
  5. HYDROMORPHONE HCL [Suspect]
     Active Substance: HYDROMORPHONE HYDROCHLORIDE
     Indication: BACK PAIN
     Dosage: 24,506 MG/DAY
     Route: 037
     Dates: start: 200607, end: 201702
  6. BACLOFEN. [Suspect]
     Active Substance: BACLOFEN
     Indication: BACK PAIN
     Dosage: 447,4 MCG/DAY
     Route: 037

REACTIONS (1)
  - Arachnoiditis [Unknown]

NARRATIVE: CASE EVENT DATE: 201612
